FAERS Safety Report 7688635 (Version 3)
Quarter: 2013Q3

REPORT INFORMATION
  Report Type: Spontaneous
  Country: US (occurrence: US)
  Receive Date: 20101201
  Receipt Date: 20130810
  Transmission Date: 20140515
  Serious: Yes (Hospitalization, Other)
  Sender: FDA-Public Use
  Company Number: US-ROCHE-722610

PATIENT
  Age: 29 Year
  Sex: Female
  Weight: 68 kg

DRUGS (1)
  1. ACCUTANE [Suspect]
     Indication: ACNE CYSTIC
     Route: 065
     Dates: start: 199511, end: 199609

REACTIONS (13)
  - Small intestinal obstruction [Unknown]
  - Gastrooesophageal reflux disease [Unknown]
  - Crohn^s disease [Unknown]
  - Gastrointestinal injury [Unknown]
  - Inflammatory bowel disease [Unknown]
  - Large intestine polyp [Unknown]
  - Depression [Recovering/Resolving]
  - Haematemesis [Unknown]
  - Irritable bowel syndrome [Unknown]
  - Anaemia [Unknown]
  - Insomnia [Unknown]
  - Diverticulum [Unknown]
  - Somnolence [Unknown]
